FAERS Safety Report 15049138 (Version 10)
Quarter: 2021Q3

REPORT INFORMATION
  Report Type: Spontaneous
  Country: GB (occurrence: GB)
  Receive Date: 20180622
  Receipt Date: 20210702
  Transmission Date: 20211014
  Serious: Yes (Death, Hospitalization, Other)
  Sender: FDA-Public Use
  Company Number: GB-TEVA-2018-GB-911261

PATIENT
  Age: 67 Year
  Sex: Female

DRUGS (19)
  1. TAMOXIFEN [Suspect]
     Active Substance: TAMOXIFEN
     Indication: BREAST CANCER METASTATIC
     Dosage: 20 MILLIGRAM DAILY; TIME INTERVAL BETWEEN BEGINNING OF DRUG ADMINISTRATION AND END OF REACTION/EV, 6
     Route: 048
     Dates: start: 20160712, end: 20160802
  2. TAMOXIFEN [Suspect]
     Active Substance: TAMOXIFEN
     Indication: HER2 POSITIVE BREAST CANCER
     Route: 065
  3. EXEMESTANE. [Suspect]
     Active Substance: EXEMESTANE
     Indication: HER2 POSITIVE BREAST CANCER
     Dates: end: 20160712
  4. CAPECITABINE. [Suspect]
     Active Substance: CAPECITABINE
     Dosage: TIME INTERVAL BETWEEN BEGINNING OF DRUG ADMINISTRATION AND END OF REACTION/EV, 1000MG
     Route: 048
     Dates: start: 20161122, end: 20161213
  5. ADALIMUMAB [Suspect]
     Active Substance: ADALIMUMAB
     Route: 058
     Dates: start: 20151124
  6. ADCAL?D3 [Concomitant]
     Active Substance: CALCIUM CARBONATE\CHOLECALCIFEROL
     Dosage: 1 DOSAGE FORMS DAILY;
     Route: 048
     Dates: start: 20101221
  7. ADALIMUMAB [Suspect]
     Active Substance: ADALIMUMAB
     Indication: PRODUCT USED FOR UNKNOWN INDICATION
     Dosage: 40 MG Q2W
     Route: 058
  8. ADCAL?D3 [Concomitant]
     Active Substance: CALCIUM CARBONATE\CHOLECALCIFEROL
     Indication: PRODUCT USED FOR UNKNOWN INDICATION
     Dosage: 1.5 GRAM DAILY;
     Route: 048
     Dates: start: 20101221, end: 201511
  9. TRASTUZUMAB. [Suspect]
     Active Substance: TRASTUZUMAB
     Route: 058
     Dates: start: 20151124, end: 20151221
  10. PACLITAXEL LIPOSOME [Suspect]
     Active Substance: PACLITAXEL
     Indication: BREAST CANCER METASTATIC
     Dosage: 141 MG, UNK TIME INTERVAL BETWEEN BEGINNING OF DRUG ADMINISTRATION AND START OF REACTION/EVENT
     Route: 042
     Dates: start: 20151124, end: 20151221
  11. CAPECITABINE. [Suspect]
     Active Substance: CAPECITABINE
     Indication: BREAST CANCER METASTATIC
     Route: 048
     Dates: start: 20161213, end: 20161216
  12. TRASTUZUMAB. [Suspect]
     Active Substance: TRASTUZUMAB
     Indication: BREAST CANCER METASTATIC
     Route: 058
     Dates: start: 20160531, end: 20161115
  13. ENOXAPARIN [Concomitant]
     Active Substance: ENOXAPARIN
     Indication: THROMBOSIS PROPHYLAXIS
     Dosage: 20 MILLIGRAM DAILY; 20 MG. QD
     Route: 058
     Dates: start: 20160106
  14. OMEPRAZOLE. [Concomitant]
     Active Substance: OMEPRAZOLE
     Indication: PRODUCT USED FOR UNKNOWN INDICATION
     Dosage: 20 MILLIGRAM DAILY;
     Route: 048
  15. PACLITAXEL LIPOSOME [Suspect]
     Active Substance: PACLITAXEL
     Indication: HER2 POSITIVE BREAST CANCER
     Route: 042
     Dates: start: 20161122
  16. ENOXAPARIN [Concomitant]
     Active Substance: ENOXAPARIN
     Indication: EMBOLISM VENOUS
     Dosage: 20 MILLIGRAM DAILY; PREVENTION OF VENOUS THROMBOEMBOLISM
     Route: 058
     Dates: start: 20160104, end: 20160106
  17. OMEPRAZOLE. [Concomitant]
     Active Substance: OMEPRAZOLE
     Dosage: 20 MG
     Route: 048
     Dates: start: 20170530
  18. EXEMESTANE. [Suspect]
     Active Substance: EXEMESTANE
     Indication: BREAST CANCER METASTATIC
     Dosage: 25 MILLIGRAM DAILY; TIME INTERVAL BETWEEN BEGINNING OF DRUG ADMINISTRATION AND END OF REACTION/EV
     Route: 048
     Dates: start: 20160531, end: 20160610
  19. CAPECITABINE. [Suspect]
     Active Substance: CAPECITABINE
     Indication: HER2 POSITIVE BREAST CANCER
     Dosage: TIME INTERVAL BETWEEN BEGINNING OF DRUG ADMINISTRATION AND END OF REACTION/EV
     Route: 048
     Dates: start: 20161122, end: 20161213

REACTIONS (40)
  - Lymphopenia [Recovered/Resolved with Sequelae]
  - Dyspnoea [Recovered/Resolved]
  - Hypertension [Recovered/Resolved with Sequelae]
  - Dyspnoea [Recovered/Resolved]
  - Sensory loss [Not Recovered/Not Resolved]
  - Diarrhoea [Recovered/Resolved]
  - Pyrexia [Recovered/Resolved]
  - Blood alkaline phosphatase increased [Recovered/Resolved with Sequelae]
  - C-reactive protein increased [Unknown]
  - Blood bilirubin increased [Recovered/Resolved]
  - Blood alkaline phosphatase increased [Recovered/Resolved with Sequelae]
  - Constipation [Recovered/Resolved]
  - Protein total decreased [Recovered/Resolved]
  - Blood alkaline phosphatase increased [Recovered/Resolved]
  - Hypokalaemia [Recovered/Resolved]
  - Urinary tract infection [Unknown]
  - White blood cell count increased [Recovered/Resolved]
  - Aspartate aminotransferase increased [Recovered/Resolved]
  - Vomiting [Recovered/Resolved]
  - Ascites [Not Recovered/Not Resolved]
  - Hypoalbuminaemia [Recovered/Resolved]
  - Blood glucose increased [Recovered/Resolved]
  - Blood phosphorus increased [Recovered/Resolved]
  - Hypernatraemia [Recovered/Resolved]
  - Blood creatinine increased [Recovered/Resolved]
  - Vomiting [Recovered/Resolved]
  - Vomiting [Recovered/Resolved]
  - Nausea [Recovered/Resolved]
  - Sensory loss [Not Recovered/Not Resolved]
  - Asthenia [Not Recovered/Not Resolved]
  - Balance disorder [Not Recovered/Not Resolved]
  - Blood urea increased [Unknown]
  - Cerebral haemorrhage [Recovered/Resolved with Sequelae]
  - Agitation [Recovered/Resolved]
  - Pain [Recovered/Resolved]
  - Fatigue [Recovered/Resolved]
  - Neutrophil count increased [Recovered/Resolved]
  - Alanine aminotransferase increased [Recovered/Resolved]
  - Vomiting [Recovered/Resolved]
  - Blood alkaline phosphatase increased [Recovered/Resolved with Sequelae]

NARRATIVE: CASE EVENT DATE: 20151124
